FAERS Safety Report 18064870 (Version 1)
Quarter: 2020Q3

REPORT INFORMATION
  Report Type: Spontaneous
  Country: US (occurrence: US)
  Receive Date: 20200723
  Receipt Date: 20200723
  Transmission Date: 20201103
  Serious: Yes (Hospitalization)
  Sender: FDA-Public Use
  Company Number: None

PATIENT
  Sex: Female

DRUGS (7)
  1. HUMIRA [Suspect]
     Active Substance: ADALIMUMAB
     Indication: PRODUCT USED FOR UNKNOWN INDICATION
     Route: 058
     Dates: start: 20180112
  2. PROBIOTIC [Concomitant]
     Active Substance: PROBIOTICS NOS
  3. PROGESTERONE. [Concomitant]
     Active Substance: PROGESTERONE
  4. BUSPIRONE [Concomitant]
     Active Substance: BUSPIRONE HYDROCHLORIDE
  5. ESTROGEL [Concomitant]
     Active Substance: ESTRADIOL
  6. FOLIC ACID. [Concomitant]
     Active Substance: FOLIC ACID
  7. MULTIPLE VIT [Concomitant]

REACTIONS (5)
  - Condition aggravated [None]
  - Unevaluable event [None]
  - Weight abnormal [None]
  - Quality of life decreased [None]
  - Abdominal pain [None]
